FAERS Safety Report 4591394-5 (Version None)
Quarter: 2005Q1

REPORT INFORMATION
  Report Type: 
  Country: None (occurrence: None)
  Receive Date: 20050222
  Receipt Date: 20050208
  Transmission Date: 20050727
  Serious: Yes (Death)
  Sender: FDA-Public Use
  Company Number: US014676

PATIENT
  Age: 26 Year
  Sex: Male

DRUGS (2)
  1. ACTIQ [Suspect]
     Indication: BACK PAIN
     Dosage: 3 UNIT ONCE BUCCAL
     Route: 002
  2. VALIUM [Concomitant]

REACTIONS (4)
  - BACK INJURY [None]
  - DRUG DEPENDENCE [None]
  - FALL [None]
  - OVERDOSE [None]
